FAERS Safety Report 10412299 (Version 3)
Quarter: 2015Q1

REPORT INFORMATION
  Report Type: Other
  Country: IT (occurrence: IT)
  Receive Date: 20140827
  Receipt Date: 20150226
  Transmission Date: 20150720
  Serious: Yes (Other)
  Sender: FDA-Public Use
  Company Number: IT-SUN PHARMACEUTICAL INDUSTRIES LTD-2014SUN01916

PATIENT

DRUGS (2)
  1. CARBOPLATINO SUN 10 MG/ML CONCENTRATO PER SOLUZIONE PER INFUSIONE [Suspect]
     Active Substance: CARBOPLATIN
     Indication: BREAST CANCER
     Dosage: 593.3 MG MONTHLY
     Route: 042
     Dates: start: 20140606, end: 20140801
  2. ANZATAX [Suspect]
     Active Substance: PACLITAXEL
     Indication: BREAST CANCER
     Dosage: 127.2 MG WEEKLY
     Route: 042
     Dates: start: 20140606, end: 20140801

REACTIONS (3)
  - Thrombotic microangiopathy [Recovered/Resolved]
  - Pain in extremity [Recovered/Resolved]
  - Cyanosis [Recovered/Resolved]

NARRATIVE: CASE EVENT DATE: 20140802
